FAERS Safety Report 14180088 (Version 1)
Quarter: 2017Q4

REPORT INFORMATION
  Report Type: Spontaneous
  Country: US (occurrence: US)
  Receive Date: 20171110
  Receipt Date: 20171110
  Transmission Date: 20180321
  Serious: Yes (Other)
  Sender: FDA-Public Use
  Company Number: US-TEVA-824473USA

PATIENT
  Age: 51 Year
  Sex: Male

DRUGS (4)
  1. CLADRIBINE. [Suspect]
     Active Substance: CLADRIBINE
     Indication: ACUTE MYELOID LEUKAEMIA
     Dosage: 5 MG/M 2 ON DAYS 1-5
     Route: 065
  2. IDARUBICIN [Suspect]
     Active Substance: IDARUBICIN
     Indication: ACUTE MYELOID LEUKAEMIA
     Dosage: 10 MG/M 2 ON DAYS 1-3
     Route: 065
  3. CYTARABINE. [Suspect]
     Active Substance: CYTARABINE
     Indication: ACUTE MYELOID LEUKAEMIA
     Dosage: 1 G/M 2 ON DAYS 1-5
     Route: 065
  4. IVOSIDENIB [Suspect]
     Active Substance: IVOSIDENIB
     Indication: ACUTE MYELOID LEUKAEMIA
     Dosage: 120 MG DAILY IN PHASE 1 CLINICAL TRIAL FOR THREE CYCLES
     Route: 065

REACTIONS (6)
  - Pseudomonal bacteraemia [Unknown]
  - IDH differentiation syndrome [Recovered/Resolved]
  - Sinusitis [Unknown]
  - Parainfluenzae virus infection [Unknown]
  - Pneumonia parainfluenzae viral [Unknown]
  - Liver abscess [Unknown]
